FAERS Safety Report 5142190-1 (Version None)
Quarter: 2006Q4

REPORT INFORMATION
  Report Type: 
  Country: None (occurrence: None)
  Receive Date: 20061102
  Receipt Date: 20061023
  Transmission Date: 20070319
  Serious: Yes (Other)
  Sender: FDA-Public Use
  Company Number: US-JNJFOC-20061000928

PATIENT
  Sex: Female
  Weight: 66 kg

DRUGS (9)
  1. REMICADE [Suspect]
     Route: 042
  2. REMICADE [Suspect]
     Indication: CROHN'S DISEASE
     Route: 042
  3. REMICADE [Suspect]
     Indication: RHEUMATOID ARTHRITIS
     Route: 042
  4. PREDNISONE TAB [Concomitant]
  5. ARAVA [Concomitant]
  6. PROZAC [Concomitant]
  7. ESTROGENIC SUBSTANCE [Concomitant]
  8. NEXIUM [Concomitant]
  9. TRAMADOL HCL [Concomitant]

REACTIONS (3)
  - ANAEMIA [None]
  - CUTANEOUS LUPUS ERYTHEMATOSUS [None]
  - LYMPHOPENIA [None]
